FAERS Safety Report 20146254 (Version 1)
Quarter: 2021Q4

REPORT INFORMATION
  Report Type: Spontaneous
  Country: CH (occurrence: CH)
  Receive Date: 20211203
  Receipt Date: 20211203
  Transmission Date: 20220303
  Serious: Yes (Other)
  Sender: FDA-Public Use
  Company Number: CH-FERRINGPH-2021FE07587

PATIENT
  Age: 26 Year
  Sex: Female
  Weight: 100 kg

DRUGS (2)
  1. DINOPROSTONE [Suspect]
     Active Substance: DINOPROSTONE
     Indication: Labour induction
     Dosage: 10 MG
     Route: 067
     Dates: start: 20211109, end: 20211110
  2. DINOPROSTONE [Suspect]
     Active Substance: DINOPROSTONE
     Dosage: 10 MG
     Route: 067
     Dates: start: 20211110, end: 20211110

REACTIONS (4)
  - Vulvovaginal burning sensation [Recovered/Resolved]
  - Oedema genital [Recovered/Resolved]
  - Multiple use of single-use product [Recovered/Resolved]
  - Off label use [Recovered/Resolved]

NARRATIVE: CASE EVENT DATE: 20211110
